FAERS Safety Report 4409941-2 (Version None)
Quarter: 2004Q3

REPORT INFORMATION
  Report Type: 
  Country: None (occurrence: None)
  Receive Date: 20040726
  Receipt Date: 20040716
  Transmission Date: 20050211
  Serious: Yes (Life-Threatening, Other)
  Sender: FDA-Public Use
  Company Number: 2004224046SK

PATIENT
  Age: 10 Year
  Sex: Male
  Weight: 28.5 kg

DRUGS (4)
  1. GENOTROPIN [Suspect]
     Indication: HYPOPITUITARISM
     Dosage: 1.4 MG, QD, SUBCUTANEOUS
     Route: 058
     Dates: start: 20040423, end: 20040530
  2. DIGOXIN [Concomitant]
  3. FUROSEMIDE [Concomitant]
  4. VEROSPIRON [Concomitant]

REACTIONS (2)
  - ILIAC VEIN THROMBOSIS [None]
  - THROMBOPHLEBITIS SUPERFICIAL [None]
